FAERS Safety Report 24721242 (Version 1)
Quarter: 2024Q4

REPORT INFORMATION
  Report Type: Spontaneous
  Country: JP (occurrence: JP)
  Receive Date: 20241211
  Receipt Date: 20241211
  Transmission Date: 20250115
  Serious: Yes (Hospitalization, Other)
  Sender: SANOFI AVENTIS
  Company Number: JP-SAKK-2024SA362288AA

PATIENT
  Age: 30 Year
  Sex: Female

DRUGS (2)
  1. DUPIXENT [Suspect]
     Active Substance: DUPILUMAB
     Indication: Dermatitis atopic
     Dosage: UNK
     Route: 058
  2. DUPIXENT [Suspect]
     Active Substance: DUPILUMAB
     Dosage: UNK
     Route: 058

REACTIONS (3)
  - Vertebrobasilar artery dissection [Recovered/Resolved]
  - Headache [Recovered/Resolved]
  - Neck pain [Recovered/Resolved]
